FAERS Safety Report 15881300 (Version 2)
Quarter: 2019Q4

REPORT INFORMATION
  Report Type: Report from Study
  Country: US (occurrence: US)
  Receive Date: 20190128
  Receipt Date: 20191104
  Transmission Date: 20200122
  Serious: Yes (Hospitalization)
  Sender: FDA-Public Use
  Company Number: US-ACTELION-A-NJ2019-185513

PATIENT
  Sex: Female
  Weight: 49.89 kg

DRUGS (2)
  1. ADCIRCA [Concomitant]
     Active Substance: TADALAFIL
  2. OPSUMIT [Suspect]
     Active Substance: MACITENTAN
     Indication: PULMONARY ARTERIAL HYPERTENSION
     Dosage: 10 MG, QD
     Route: 048

REACTIONS (6)
  - Gastroenteritis viral [Unknown]
  - Diarrhoea [Unknown]
  - Dehydration [Unknown]
  - Fluid retention [Unknown]
  - Vomiting [Unknown]
  - Pulmonary embolism [Unknown]
